FAERS Safety Report 13320707 (Version 3)
Quarter: 2020Q2

REPORT INFORMATION
  Report Type: Spontaneous
  Country: US (occurrence: US)
  Receive Date: 20170309
  Receipt Date: 20200525
  Transmission Date: 20200713
  Serious: No
  Sender: FDA-Public Use
  Company Number: US-TEVA-724003ACC

PATIENT
  Sex: Female

DRUGS (1)
  1. DORZOLAMIDE W/TIMOLOL [Suspect]
     Active Substance: DORZOLAMIDE HYDROCHLORIDE\TIMOLOL MALEATE
     Indication: GLAUCOMA
     Dosage: FORM STRENGTH: 2/0.5 PERCENT
     Dates: start: 20160406

REACTIONS (1)
  - Eye pain [Unknown]
